FAERS Safety Report 19622702 (Version 1)
Quarter: 2021Q3

REPORT INFORMATION
  Report Type: Spontaneous
  Country: US (occurrence: US)
  Receive Date: 20210728
  Receipt Date: 20210728
  Transmission Date: 20211014
  Serious: No
  Sender: FDA-Public Use
  Company Number: US-CELGENEUS-USA-20210704982

PATIENT
  Age: 77 Year
  Sex: Male

DRUGS (39)
  1. CHLORHEXIDINE [Concomitant]
     Active Substance: CHLORHEXIDINE
     Dosage: SWISH AND EXPECTORATE 15ML TWICE DAILY FOR 7 DAYS
     Route: 048
     Dates: start: 202005
  2. CHLORHEXIDINE [Concomitant]
     Active Substance: CHLORHEXIDINE
     Dosage: RINSE MOUTH WITH 1 CAPFUL 15ML FOR 30 SEC AM AND PM AFTER BRUSHING. EXPECTORATE AFTER RINSING.
     Route: 048
     Dates: start: 202106
  3. HYDROCODONE/ACETAMINOPHEN [Concomitant]
     Active Substance: ACETAMINOPHEN\HYDROCODONE
     Dosage: 5?325 TB
     Route: 048
     Dates: start: 202106
  4. ALLOPURINOL. [Concomitant]
     Active Substance: ALLOPURINOL
     Indication: PRODUCT USED FOR UNKNOWN INDICATION
     Route: 048
  5. CETRIZINE [Concomitant]
     Active Substance: CETIRIZINE HYDROCHLORIDE
     Indication: PRODUCT USED FOR UNKNOWN INDICATION
     Route: 048
  6. ACETAMINOPHEN. [Concomitant]
     Active Substance: ACETAMINOPHEN
     Indication: PRODUCT USED FOR UNKNOWN INDICATION
     Route: 048
  7. FUROSEMIDE. [Concomitant]
     Active Substance: FUROSEMIDE
     Indication: PRODUCT USED FOR UNKNOWN INDICATION
     Route: 048
  8. AMOXICILLIN. [Concomitant]
     Active Substance: AMOXICILLIN
     Indication: PRODUCT USED FOR UNKNOWN INDICATION
     Route: 048
     Dates: start: 202002
  9. HYDROCODONE/ACETAMINOPHEN [Concomitant]
     Active Substance: ACETAMINOPHEN\HYDROCODONE
     Dosage: 5?325 TB
     Route: 048
     Dates: start: 202009
  10. LEVOFLOXACIN. [Concomitant]
     Active Substance: LEVOFLOXACIN
     Indication: PRODUCT USED FOR UNKNOWN INDICATION
     Route: 048
     Dates: start: 202003
  11. PROCHLORPERAZINE. [Concomitant]
     Active Substance: PROCHLORPERAZINE
     Indication: NAUSEA
     Route: 048
     Dates: start: 202012
  12. PROCHLORPERAZINE. [Concomitant]
     Active Substance: PROCHLORPERAZINE
     Indication: VOMITING
  13. OMEPRAZOLE. [Concomitant]
     Active Substance: OMEPRAZOLE
     Indication: PRODUCT USED FOR UNKNOWN INDICATION
     Route: 048
  14. CHLORHEXIDINE [Concomitant]
     Active Substance: CHLORHEXIDINE
     Indication: PRODUCT USED FOR UNKNOWN INDICATION
     Dosage: SWISH AND EXPECTORATE 15ML TWICE DAILY FOR 7 DAYS
     Route: 048
     Dates: start: 202002
  15. FLUTICASONE ALLERGY [Concomitant]
     Indication: PRODUCT USED FOR UNKNOWN INDICATION
     Route: 045
  16. POMALYST [Suspect]
     Active Substance: POMALIDOMIDE
     Indication: PLASMA CELL MYELOMA
     Dosage: 3 MILLIGRAM
     Route: 048
     Dates: start: 20200326
  17. AMOXICILLIN. [Concomitant]
     Active Substance: AMOXICILLIN
     Route: 048
     Dates: start: 202007
  18. HYDROCODONE/ACETAMINOPHEN [Concomitant]
     Active Substance: ACETAMINOPHEN\HYDROCODONE
     Indication: PAIN
     Dosage: 5?325 TB
     Route: 048
     Dates: start: 202007
  19. PROMETHAZINE [Concomitant]
     Active Substance: PROMETHAZINE HYDROCHLORIDE
     Indication: PRODUCT USED FOR UNKNOWN INDICATION
     Route: 048
     Dates: start: 202102
  20. METOPROLOL SUCCINATE. [Concomitant]
     Active Substance: METOPROLOL SUCCINATE
     Indication: PRODUCT USED FOR UNKNOWN INDICATION
     Route: 048
  21. AMOXICILLIN. [Concomitant]
     Active Substance: AMOXICILLIN
     Route: 048
     Dates: start: 202106
  22. CHLORHEXIDINE [Concomitant]
     Active Substance: CHLORHEXIDINE
     Dosage: RINSE MOUTH WITH 1 CAPFUL 15ML FOR 30 SEC AM AND PM AFTER BRUSHING. EXPECTORATE AFTER RINSING
     Route: 048
     Dates: start: 202007
  23. ELIQUIS [Concomitant]
     Active Substance: APIXABAN
     Indication: PRODUCT USED FOR UNKNOWN INDICATION
     Route: 048
     Dates: start: 202003
  24. HYDROCODONE/ACETAMINOPHEN [Concomitant]
     Active Substance: ACETAMINOPHEN\HYDROCODONE
     Dosage: 5?325 TB
     Route: 048
     Dates: start: 202102
  25. LEVALBUTEROL HFA [Concomitant]
     Indication: PRODUCT USED FOR UNKNOWN INDICATION
     Route: 065
     Dates: start: 201912
  26. NINLARO [Concomitant]
     Active Substance: IXAZOMIB CITRATE
     Indication: PRODUCT USED FOR UNKNOWN INDICATION
     Route: 048
     Dates: start: 202106
  27. CALCIUM+ D [Concomitant]
     Indication: PRODUCT USED FOR UNKNOWN INDICATION
     Dosage: 200 U
     Route: 048
  28. MAGNESIUM OXIDE. [Concomitant]
     Active Substance: MAGNESIUM OXIDE
     Indication: PRODUCT USED FOR UNKNOWN INDICATION
     Route: 048
  29. MULTIVITAMIN [Concomitant]
     Active Substance: VITAMINS
     Indication: PRODUCT USED FOR UNKNOWN INDICATION
     Route: 048
  30. VITAMIN B12 [Concomitant]
     Active Substance: CYANOCOBALAMIN
     Indication: PRODUCT USED FOR UNKNOWN INDICATION
     Route: 048
  31. POMALYST [Suspect]
     Active Substance: POMALIDOMIDE
     Dosage: 2 MILLIGRAM
     Route: 048
     Dates: start: 202107
  32. AMOXICILLIN. [Concomitant]
     Active Substance: AMOXICILLIN
     Route: 048
     Dates: start: 202005
  33. DEXAMETHASONE. [Concomitant]
     Active Substance: DEXAMETHASONE
     Indication: PRODUCT USED FOR UNKNOWN INDICATION
     Route: 048
  34. FLECAINIDE [Concomitant]
     Active Substance: FLECAINIDE
     Indication: PRODUCT USED FOR UNKNOWN INDICATION
     Route: 048
  35. KLOR?CON [Concomitant]
     Active Substance: POTASSIUM CHLORIDE
     Indication: PRODUCT USED FOR UNKNOWN INDICATION
     Dosage: M20 ER
     Route: 048
  36. LOPERAMIDE [Concomitant]
     Active Substance: LOPERAMIDE
     Indication: PRODUCT USED FOR UNKNOWN INDICATION
     Route: 048
  37. MONTELUKAST [Concomitant]
     Active Substance: MONTELUKAST SODIUM
     Indication: PRODUCT USED FOR UNKNOWN INDICATION
     Route: 048
  38. AMOXICILLIN. [Concomitant]
     Active Substance: AMOXICILLIN
     Route: 048
     Dates: start: 202009
  39. ACYCLOVIR. [Concomitant]
     Active Substance: ACYCLOVIR
     Indication: PRODUCT USED FOR UNKNOWN INDICATION
     Route: 048

REACTIONS (2)
  - White blood cell count decreased [Unknown]
  - Tooth disorder [Unknown]

NARRATIVE: CASE EVENT DATE: 20210707
